FAERS Safety Report 12253039 (Version 1)
Quarter: 2016Q2

REPORT INFORMATION
  Report Type: Spontaneous
  Country: US (occurrence: US)
  Receive Date: 20160411
  Receipt Date: 20160411
  Transmission Date: 20160815
  Serious: No
  Sender: FDA-Public Use
  Company Number: US-BAYER-2016-068103

PATIENT

DRUGS (1)
  1. GADAVIST [Suspect]
     Active Substance: GADOBUTROL
     Indication: PRODUCT USED FOR UNKNOWN INDICATION
     Dosage: UNK UNK, ONCE
     Dates: start: 20160322, end: 20160322

REACTIONS (3)
  - Urticaria [Unknown]
  - Dyspnoea [Unknown]
  - Erythema [Unknown]

NARRATIVE: CASE EVENT DATE: 20160322
